FAERS Safety Report 8537975-5 (Version None)
Quarter: 2012Q3

REPORT INFORMATION
  Report Type: 
  Country: None (occurrence: None)
  Receive Date: 20120725
  Receipt Date: 20120720
  Transmission Date: 20120928
  Serious: No
  Sender: FDA-Public Use
  Company Number: US-BAYER-2012-073460

PATIENT
  Age: 23 Year
  Sex: Male
  Weight: 63 kg

DRUGS (3)
  1. ALEVE (CAPLET) [Suspect]
     Indication: ANALGESIC THERAPY
     Dosage: 4 DF, ONCE
     Dates: start: 20120720
  2. ALEVE (CAPLET) [Suspect]
     Indication: MIGRAINE
  3. ALEVE (CAPLET) [Suspect]
     Indication: ABDOMINAL PAIN UPPER

REACTIONS (1)
  - NO ADVERSE EVENT [None]
